FAERS Safety Report 9471447 (Version 1)
Quarter: 2013Q3

REPORT INFORMATION
  Report Type: Spontaneous
  Country: IT (occurrence: IT)
  Receive Date: 20130822
  Receipt Date: 20130822
  Transmission Date: 20140515
  Serious: Yes (Hospitalization)
  Sender: FDA-Public Use
  Company Number: IT-TEVA-426303ISR

PATIENT
  Age: 56 Year
  Sex: Female

DRUGS (3)
  1. VENLAFAXINA [Suspect]
     Indication: INTENTIONAL SELF-INJURY
     Dosage: 40 DOSAGE FORMS DAILY;
     Route: 048
     Dates: start: 20130302, end: 20130302
  2. RIVOTRIL [Suspect]
     Indication: INTENTIONAL SELF-INJURY
     Dosage: 20 DOSAGE FORMS DAILY;
     Route: 048
     Dates: start: 20130302, end: 20130302
  3. ALCOHOL [Suspect]

REACTIONS (4)
  - Drug abuse [Recovering/Resolving]
  - Sopor [Recovering/Resolving]
  - Abdominal pain [Recovering/Resolving]
  - Hypoventilation [Recovering/Resolving]
